FAERS Safety Report 25876999 (Version 1)
Quarter: 2025Q4

REPORT INFORMATION
  Report Type: Spontaneous
  Country: US (occurrence: None)
  Receive Date: 20251002
  Receipt Date: 20251002
  Transmission Date: 20260117
  Serious: Yes (Other)
  Sender: FDA-CTU
  Company Number: None

PATIENT
  Age: 82 Year
  Sex: Male

DRUGS (5)
  1. ADEMPAS [Suspect]
     Active Substance: RIOCIGUAT
     Indication: Pulmonary hypertension
     Dosage: 2.5MG TID ORAL ?
     Route: 048
     Dates: start: 20250401
  2. DABIGATRAN [Concomitant]
     Active Substance: DABIGATRAN
  3. ATORVASTATIN [Concomitant]
     Active Substance: ATORVASTATIN
  4. TORSEMIDE [Concomitant]
     Active Substance: TORSEMIDE
  5. SPIRONOLACTONE [Concomitant]
     Active Substance: SPIRONOLACTONE

REACTIONS (2)
  - Dyspnoea [None]
  - Chest pain [None]

NARRATIVE: CASE EVENT DATE: 20250913
